FAERS Safety Report 17913647 (Version 2)
Quarter: 2020Q2

REPORT INFORMATION
  Report Type: Spontaneous
  Country: US (occurrence: US)
  Receive Date: 20200618
  Receipt Date: 20200626
  Transmission Date: 20200714
  Serious: No
  Sender: FDA-Public Use
  Company Number: US-BAYER-2020-103679

PATIENT
  Age: 58 Year
  Sex: Female

DRUGS (1)
  1. CLIMARA PRO [Suspect]
     Active Substance: ESTRADIOL\LEVONORGESTREL
     Dosage: UNK
     Route: 062
     Dates: start: 2019

REACTIONS (4)
  - Product adhesion issue [None]
  - Wrong technique in product usage process [None]
  - Menopausal symptoms [None]
  - Device defective [None]

NARRATIVE: CASE EVENT DATE: 202005
